FAERS Safety Report 16571415 (Version 1)
Quarter: 2019Q3

REPORT INFORMATION
  Report Type: Spontaneous
  Country: US (occurrence: US)
  Receive Date: 20190713
  Receipt Date: 20190713
  Transmission Date: 20191004
  Serious: Yes (Other)
  Sender: FDA-Public Use
  Company Number: None

PATIENT
  Age: 51 Year
  Sex: Female
  Weight: 49.5 kg

DRUGS (1)
  1. CIPROFLOXACIN. [Suspect]
     Active Substance: CIPROFLOXACIN
     Indication: URINARY TRACT INFECTION
     Dosage: ?          QUANTITY:10 TABLET(S);?
     Route: 048
     Dates: start: 20190711, end: 20190712

REACTIONS (6)
  - Lymphadenopathy [None]
  - Pain [None]
  - Bipolar disorder [None]
  - Heart rate irregular [None]
  - Suicidal ideation [None]
  - Chest pain [None]

NARRATIVE: CASE EVENT DATE: 20190711
